FAERS Safety Report 11167023 (Version 1)
Quarter: 2015Q2

REPORT INFORMATION
  Report Type: Spontaneous
  Country: IT (occurrence: None)
  Receive Date: 20150603
  Receipt Date: 20150603
  Transmission Date: 20150821
  Serious: Yes (Life-Threatening, Hospitalization)
  Sender: FDA-Public Use
  Company Number: 2015DEPIT00633

PATIENT
  Age: 3 Year
  Sex: Female

DRUGS (2)
  1. DEXAMETHASONE (DEXAMETHASONE SODIUM PHOSPHATE) [Concomitant]
  2. DEPOCYT(E) (CYTARABINE) LIPOSOME INJECTABLE SUSPENSION, MG [Suspect]
     Active Substance: CYTARABINE
     Indication: ACUTE LEUKAEMIA
     Dosage: 35MG, EVERY 14 DAYS, 3 ADMINS IN TOTAL
     Dates: start: 20110403

REACTIONS (8)
  - Aphasia [None]
  - Brain oedema [None]
  - Asthenia [None]
  - Chorea [None]
  - Ataxia [None]
  - Neurotoxicity [None]
  - Leukaemia [None]
  - Malignant neoplasm progression [None]

NARRATIVE: CASE EVENT DATE: 20110403
